FAERS Safety Report 12528790 (Version 1)
Quarter: 2016Q3

REPORT INFORMATION
  Report Type: Spontaneous
  Country: CA (occurrence: CA)
  Receive Date: 20160705
  Receipt Date: 20160705
  Transmission Date: 20161109
  Serious: Yes (Other)
  Sender: FDA-Public Use
  Company Number: CA-PFIZER INC-2015179918

PATIENT
  Age: 74 Year
  Sex: Female

DRUGS (7)
  1. PLAQUENIL [Suspect]
     Active Substance: HYDROXYCHLOROQUINE SULFATE
     Indication: RHEUMATOID ARTHRITIS
     Dosage: 200 MG TABLET TAKE 2 TABLETS DAILY FROM MONDAY TO FRIDAY THEN 1 TABLET DAILY SATURDAY AND SUNDAY
     Dates: start: 20141125
  2. FOLIC ACID. [Concomitant]
     Active Substance: FOLIC ACID
     Dosage: 5 MG, DAILY (6 DAYS PER WEEK)
     Route: 048
     Dates: start: 20141125
  3. METHOTREXATE SODIUM. [Suspect]
     Active Substance: METHOTREXATE SODIUM
     Indication: RHEUMATOID ARTHRITIS
     Dosage: 15 MG ( 6 TABLETS OF 2.5 MG), WEEKLY
     Route: 048
     Dates: start: 20140818, end: 2014
  4. PLAQUENIL [Suspect]
     Active Substance: HYDROXYCHLOROQUINE SULFATE
     Dosage: 400 MG (200 MG X 2 TABLETS), 1X/DAY
     Dates: start: 20150218, end: 201505
  5. METHOTREXATE SODIUM. [Suspect]
     Active Substance: METHOTREXATE SODIUM
     Dosage: 17.5 MG (7 TABLETS OF 2.5 MG) , WEEKLY
     Route: 048
     Dates: start: 2014, end: 2014
  6. METHOTREXATE SODIUM. [Suspect]
     Active Substance: METHOTREXATE SODIUM
     Dosage: 20 MG (8 TABLETS OF 2.5 MG), WEEKLY
     Route: 048
     Dates: start: 20141125, end: 201602
  7. ARAVA [Suspect]
     Active Substance: LEFLUNOMIDE
     Indication: RHEUMATOID ARTHRITIS
     Dosage: 20 MG, DAILY
     Dates: start: 20150218, end: 201505

REACTIONS (7)
  - Drug ineffective [Not Recovered/Not Resolved]
  - Mycobacterium tuberculosis complex test positive [Unknown]
  - Breast cancer female [Unknown]
  - Synovitis [Unknown]
  - Diarrhoea [Unknown]
  - Pain [Unknown]
  - Interstitial lung disease [Unknown]
